FAERS Safety Report 5146262-7 (Version None)
Quarter: 2006Q4

REPORT INFORMATION
  Report Type: 
  Country: None (occurrence: None)
  Receive Date: 20061108
  Receipt Date: 20061025
  Transmission Date: 20070319
  Serious: Yes (Other)
  Sender: FDA-Public Use
  Company Number: GB-ELI_LILLY_AND_COMPANY-GB200610004628

PATIENT
  Age: 24 Year
  Sex: Male
  Weight: 53 kg

DRUGS (3)
  1. FLUOXETINE [Suspect]
     Indication: DEPRESSION
     Dosage: 20 MG, DAILY (1/D)
     Route: 048
     Dates: start: 20060822, end: 20060907
  2. ZOPICLONE [Concomitant]
     Indication: INSOMNIA
     Route: 048
     Dates: start: 20060822, end: 20060902
  3. SALBUTAMOL [Concomitant]
     Indication: ASTHMA
     Dosage: 2 D/F, 4/D
     Route: 055

REACTIONS (2)
  - BLOOD BLISTER [None]
  - OEDEMA [None]
